FAERS Safety Report 8321440-4 (Version None)
Quarter: 2012Q2

REPORT INFORMATION
  Report Type: 
  Country: None (occurrence: None)
  Receive Date: 20120430
  Receipt Date: 20091006
  Transmission Date: 20120825
  Serious: No
  Sender: FDA-Public Use
  Company Number: US-TEVA-2009011199

PATIENT
  Sex: Male
  Weight: 72.64 kg

DRUGS (16)
  1. RAMIPRIL [Concomitant]
  2. LANOXIN [Concomitant]
  3. FEXOFENADINE [Concomitant]
  4. MULTI-VITAMIN [Concomitant]
  5. SAW PALMETTO [Concomitant]
  6. ASPIRIN [Concomitant]
  7. PROVIGIL [Suspect]
     Indication: MULTIPLE SYSTEM ATROPHY
  8. PROVIGIL [Suspect]
     Indication: SOMNOLENCE
     Dosage: 200 MILLIGRAM;
     Route: 048
     Dates: start: 20080101, end: 20080101
  9. NUVIGIL [Suspect]
     Route: 048
  10. LASIX [Concomitant]
  11. THERATEARS [Concomitant]
  12. CARVEDILOL [Concomitant]
  13. ZETIA [Concomitant]
  14. MUCINEX DM [Concomitant]
  15. KLOR-CON [Concomitant]
  16. EXALON PATCH [Concomitant]

REACTIONS (1)
  - DRUG INEFFECTIVE [None]
